FAERS Safety Report 6436022-9 (Version None)
Quarter: 2009Q4

REPORT INFORMATION
  Report Type: 
  Country: None (occurrence: None)
  Receive Date: 20091111
  Receipt Date: 20080908
  Transmission Date: 20100525
  Serious: Yes (Hospitalization)
  Sender: FDA-Public Use
  Company Number: PH-ASTRAZENECA-2008AP07065

PATIENT
  Age: 51 Year
  Sex: Male

DRUGS (6)
  1. CRESTOR [Suspect]
     Route: 048
     Dates: end: 20060401
  2. NEXIUM [Concomitant]
  3. ATENOLOL [Concomitant]
  4. PREDNISOLONE [Concomitant]
  5. ALPRAZOLAM [Concomitant]
  6. LOSARTAN [Concomitant]

REACTIONS (2)
  - MYOSITIS [None]
  - OVERDOSE [None]
